FAERS Safety Report 23935080 (Version 5)
Quarter: 2024Q3

REPORT INFORMATION
  Report Type: Spontaneous
  Country: US (occurrence: US)
  Receive Date: 20240604
  Receipt Date: 20240910
  Transmission Date: 20241017
  Serious: Yes (Other)
  Sender: BRISTOL MYERS SQUIBB
  Company Number: US-BRISTOL-MYERS SQUIBB COMPANY-2024-089400

PATIENT
  Age: 78 Year
  Sex: Male
  Weight: 73.94 kg

DRUGS (1)
  1. REVLIMID [Suspect]
     Active Substance: LENALIDOMIDE
     Indication: Myelodysplastic syndrome
     Dosage: 3WKSON/1WKOFF
     Route: 048
     Dates: start: 20240501

REACTIONS (10)
  - White blood cell count decreased [Unknown]
  - Platelet count decreased [Unknown]
  - Muscle spasms [Unknown]
  - Hypoacusis [Unknown]
  - Full blood count decreased [Recovering/Resolving]
  - Off label use [Unknown]
  - Constipation [Unknown]
  - Diarrhoea [Unknown]
  - Flatulence [Unknown]
  - Dehydration [Unknown]
